FAERS Safety Report 15131775 (Version 4)
Quarter: 2018Q4

REPORT INFORMATION
  Report Type: Report from Study
  Country: ES (occurrence: ES)
  Receive Date: 20180711
  Receipt Date: 20181218
  Transmission Date: 20190204
  Serious: Yes (Other)
  Sender: FDA-Public Use
  Company Number: ES-PFIZER INC-2018275152

PATIENT
  Age: 54 Year

DRUGS (2)
  1. PACLITAXEL. [Suspect]
     Active Substance: PACLITAXEL
     Indication: BREAST CANCER METASTATIC
     Dosage: UNK
     Route: 042
     Dates: start: 20160719, end: 20161220
  2. BEVACIZUMAB. [Suspect]
     Active Substance: BEVACIZUMAB
     Indication: BREAST CANCER METASTATIC
     Dosage: UNK
     Route: 042
     Dates: start: 20160719, end: 20161213

REACTIONS (30)
  - Onychalgia [Recovered/Resolved]
  - Genital herpes [Recovered/Resolved]
  - Sensitivity of teeth [Recovered/Resolved]
  - Asthenia [Recovered/Resolved]
  - Throat irritation [Recovered/Resolved]
  - Neurotoxicity [Not Recovered/Not Resolved]
  - Cough [Recovered/Resolved]
  - Dyspnoea [Recovered/Resolved]
  - Vertigo [Recovered/Resolved]
  - Back pain [Recovered/Resolved]
  - Gingival bleeding [Recovered/Resolved]
  - Dizziness [Recovered/Resolved]
  - Nail toxicity [Recovered/Resolved]
  - Vulvovaginal mycotic infection [Recovered/Resolved]
  - Chest pain [Recovered/Resolved]
  - Lymphoedema [Recovering/Resolving]
  - Loss of consciousness [Recovered/Resolved]
  - Myalgia [Recovered/Resolved]
  - Neutropenia [Recovering/Resolving]
  - Perianal erythema [Recovered/Resolved]
  - Tooth abscess [Recovered/Resolved]
  - Arthralgia [Recovered/Resolved]
  - Alopecia [Not Recovered/Not Resolved]
  - Syncope [Recovered/Resolved]
  - Tinnitus [Recovered/Resolved]
  - Vomiting [Recovered/Resolved]
  - Vulvovaginitis [Recovered/Resolved]
  - Diarrhoea [Recovered/Resolved]
  - Extravasation [Recovered/Resolved]
  - Asthenia [Recovered/Resolved]

NARRATIVE: CASE EVENT DATE: 20160720
